FAERS Safety Report 9915634 (Version 1)
Quarter: 2014Q1

REPORT INFORMATION
  Report Type: Spontaneous
  Country: US (occurrence: None)
  Receive Date: 20140219
  Receipt Date: 20140219
  Transmission Date: 20141002
  Serious: Yes (Hospitalization)
  Sender: FDA-Public Use
  Company Number: None

PATIENT
  Age: 64 Year
  Sex: Male
  Weight: 71.5 kg

DRUGS (2)
  1. ASPIRIN [Suspect]
     Indication: PROPHYLAXIS
     Route: 048
     Dates: start: 20140101, end: 20140129
  2. ASPIRIN [Suspect]
     Indication: CARDIAC DISORDER
     Route: 048
     Dates: start: 20140101, end: 20140129

REACTIONS (5)
  - Abdominal pain [None]
  - Vomiting [None]
  - Melaena [None]
  - Peptic ulcer [None]
  - Duodenal stenosis [None]
